FAERS Safety Report 18811507 (Version 5)
Quarter: 2021Q3

REPORT INFORMATION
  Report Type: Spontaneous
  Country: JP (occurrence: JP)
  Receive Date: 20210129
  Receipt Date: 20210916
  Transmission Date: 20211014
  Serious: Yes (Hospitalization, Other)
  Sender: FDA-Public Use
  Company Number: JP-LUNDBECK-DKLU3027610

PATIENT
  Age: 5 Year
  Sex: Male

DRUGS (20)
  1. VIGABATRIN. [Suspect]
     Active Substance: VIGABATRIN
     Dosage: 750 MG, BID
     Route: 048
     Dates: start: 20200527, end: 20200609
  2. VIGABATRIN. [Suspect]
     Active Substance: VIGABATRIN
     Dosage: 1000 MG, BID
     Route: 048
     Dates: start: 20201217, end: 20210412
  3. LAMOTRIGINE. [Concomitant]
     Active Substance: LAMOTRIGINE
     Indication: INFANTILE SPASMS
     Dosage: DAILY DOSE: 44 MG
     Route: 048
  4. MAGNESIUM OXIDE. [Concomitant]
     Active Substance: MAGNESIUM OXIDE
     Indication: PRODUCT USED FOR UNKNOWN INDICATION
     Dosage: DAILY DOSE: 1 G
     Route: 048
  5. VIGABATRIN. [Suspect]
     Active Substance: VIGABATRIN
     Dosage: 350 MG, BID
     Route: 048
     Dates: start: 20200330, end: 20200430
  6. CARNITINE HYDROCHLORIDE [Concomitant]
     Indication: PRODUCT USED FOR UNKNOWN INDICATION
     Dosage: DAILY DOSE: 400 MG
     Route: 048
     Dates: end: 20210825
  7. BACLOFEN. [Concomitant]
     Active Substance: BACLOFEN
     Indication: PRODUCT USED FOR UNKNOWN INDICATION
     Dosage: DAILY DOSE: 10 MG
     Route: 048
  8. VIGABATRIN. [Suspect]
     Active Substance: VIGABATRIN
     Dosage: 750 MG, BID
     Route: 048
     Dates: start: 20210413, end: 20210427
  9. VIGABATRIN. [Suspect]
     Active Substance: VIGABATRIN
     Dosage: 250 MG, BID
     Route: 048
     Dates: start: 20210511, end: 20210530
  10. VIGABATRIN. [Suspect]
     Active Substance: VIGABATRIN
     Indication: INFANTILE SPASMS
     Dosage: 1000 MG, BID
     Route: 048
     Dates: start: 20200610, end: 20200930
  11. CHLORDIAZEPOXIDE. [Concomitant]
     Active Substance: CHLORDIAZEPOXIDE
     Indication: PRODUCT USED FOR UNKNOWN INDICATION
     Dosage: DAILY DOSE: 10 MG
     Route: 048
  12. VIGABATRIN. [Suspect]
     Active Substance: VIGABATRIN
     Dosage: 750 MG, BID
     Route: 048
     Dates: start: 20201119, end: 20201216
  13. VIGABATRIN. [Suspect]
     Active Substance: VIGABATRIN
     Dosage: 500 MG, BID
     Route: 048
     Dates: start: 20210428, end: 20210510
  14. THIOPENTAL SODIUM. [Suspect]
     Active Substance: THIOPENTAL SODIUM
     Indication: PROPHYLAXIS
     Dosage: DAILY DOSE: 50 MG
     Route: 042
     Dates: start: 20210324, end: 20210324
  15. PERAMPANEL [Concomitant]
     Active Substance: PERAMPANEL
     Indication: INFANTILE SPASMS
     Dosage: DAILY DOSE: 5 MG
     Route: 048
  16. VIGABATRIN. [Suspect]
     Active Substance: VIGABATRIN
     Dosage: 500 MG, BID
     Route: 048
     Dates: start: 20200501, end: 20200526
  17. VIGABATRIN. [Suspect]
     Active Substance: VIGABATRIN
     Dosage: 750 MG, BID
     Route: 048
     Dates: start: 20201001, end: 20201026
  18. VIGABATRIN. [Suspect]
     Active Substance: VIGABATRIN
     Dosage: 500 MG, BID
     Route: 048
     Dates: start: 20201027, end: 20201118
  19. RAMELTEON [Concomitant]
     Active Substance: RAMELTEON
     Indication: PRODUCT USED FOR UNKNOWN INDICATION
     Dosage: DAILY DOSE: 3 MG
     Route: 048
  20. CLOSTRIDIUM BUTYRICUM [Concomitant]
     Active Substance: CLOSTRIDIUM BUTYRICUM SPORES STRAIN M-55
     Indication: PRODUCT USED FOR UNKNOWN INDICATION
     Dosage: DAILY DOSE: 1.5 G
     Route: 048

REACTIONS (4)
  - Retinogram abnormal [Unknown]
  - Tracheostomy [Recovered/Resolved]
  - Laryngeal operation [Recovered/Resolved]
  - Respiratory depression [Recovered/Resolved]

NARRATIVE: CASE EVENT DATE: 20210119
